FAERS Safety Report 6768761-4 (Version None)
Quarter: 2010Q2

REPORT INFORMATION
  Report Type: 
  Country: None (occurrence: None)
  Receive Date: 20100614
  Receipt Date: 20100602
  Transmission Date: 20101027
  Serious: Yes (Other)
  Sender: FDA-Public Use
  Company Number: US-ASTRAZENECA-2010SE25452

PATIENT
  Age: 54 Year
  Sex: Male

DRUGS (11)
  1. SEROQUEL [Suspect]
     Indication: BIPOLAR DISORDER
     Route: 048
     Dates: start: 20010101, end: 20080101
  2. SEROQUEL [Suspect]
     Route: 048
     Dates: start: 20080101
  3. SEROQUEL [Suspect]
     Route: 048
     Dates: end: 20100401
  4. UROSET K [Concomitant]
     Indication: NEPHROLITHIASIS
  5. CLONAZEPAM [Concomitant]
     Indication: NERVOUSNESS
  6. LITHIUM [Concomitant]
  7. NEURONTIN [Concomitant]
  8. AVAPRO [Concomitant]
     Indication: HYPERTENSION
  9. ALLOPURINOL [Concomitant]
  10. FLURAZEPAM [Concomitant]
     Indication: SLEEP DISORDER
  11. ASPIRIN [Concomitant]

REACTIONS (12)
  - ANAEMIA [None]
  - ANGER [None]
  - ANTIPSYCHOTIC DRUG LEVEL INCREASED [None]
  - BACK PAIN [None]
  - BLOOD GLUCOSE INCREASED [None]
  - DRUG DOSE OMISSION [None]
  - INTERVERTEBRAL DISC DISORDER [None]
  - OROPHARYNGEAL PAIN [None]
  - PROSTATE CANCER [None]
  - SOMNOLENCE [None]
  - THYROID DISORDER [None]
  - TOOTH DISORDER [None]
